FAERS Safety Report 8886631 (Version 2)
Quarter: 2012Q4

REPORT INFORMATION
  Report Type: 
  Country: US (occurrence: US)
  Receive Date: 20121105
  Receipt Date: 20121204
  Transmission Date: 20130627
  Serious: No
  Sender: FDA-Public Use
  Company Number: US-PFIZER INC-2012274722

PATIENT
  Age: 62 Year
  Sex: Female
  Weight: 54.42 kg

DRUGS (3)
  1. LYRICA [Suspect]
     Indication: FIBROMYALGIA
     Dosage: 50 mg, every 8 hours
     Route: 048
     Dates: start: 20121001
  2. LYRICA [Suspect]
     Indication: CHRONIC FATIGUE SYNDROME
     Dosage: 100 mg, 2x/day
     Route: 048
     Dates: start: 20121031
  3. ADVAIR DISKUS [Concomitant]
     Indication: ASTHMA
     Dosage: [fluticasone propionate 250ug/ salmeterol 50ug], 2x/day

REACTIONS (3)
  - Off label use [Unknown]
  - Expired drug administered [Unknown]
  - Pain [Unknown]
